FAERS Safety Report 8279572-5 (Version None)
Quarter: 2012Q2

REPORT INFORMATION
  Report Type: 
  Country: None (occurrence: None)
  Receive Date: 20120412
  Receipt Date: 20110822
  Transmission Date: 20120825
  Serious: No
  Sender: FDA-Public Use
  Company Number: US-ASTRAZENECA-2011SE08003

PATIENT
  Age: 52 Year
  Sex: Female
  Weight: 75.3 kg

DRUGS (1)
  1. NEXIUM [Suspect]
     Indication: GASTROOESOPHAGEAL REFLUX DISEASE
     Route: 048
     Dates: start: 20080226

REACTIONS (4)
  - DYSPEPSIA [None]
  - APHAGIA [None]
  - FEELING ABNORMAL [None]
  - DRUG DOSE OMISSION [None]
